FAERS Safety Report 8846634 (Version 3)
Quarter: 2012Q4

REPORT INFORMATION
  Report Type: 
  Country: US (occurrence: US)
  Receive Date: 20121017
  Receipt Date: 20121026
  Transmission Date: 20130627
  Serious: Yes (Death)
  Sender: FDA-Public Use
  Company Number: US-JNJFOC-20121009438

PATIENT
  Age: 83 None
  Sex: Female

DRUGS (3)
  1. XARELTO [Suspect]
     Indication: CEREBROVASCULAR ACCIDENT PROPHYLAXIS
     Route: 065
  2. XARELTO [Suspect]
     Indication: ATRIAL FIBRILLATION
     Route: 065
  3. ASPIRIN [Concomitant]

REACTIONS (2)
  - Subdural haematoma [Fatal]
  - Fall [Unknown]
